FAERS Safety Report 10971379 (Version 1)
Quarter: 2015Q1

REPORT INFORMATION
  Report Type: Spontaneous
  Country: US (occurrence: None)
  Receive Date: 20150330
  Receipt Date: 20150330
  Transmission Date: 20150721
  Serious: Yes (Hospitalization, Disabling, Other)
  Sender: FDA-Public Use
  Company Number: None

PATIENT
  Age: 51 Year
  Sex: Male
  Weight: 102.51 kg

DRUGS (6)
  1. CPAP [Concomitant]
     Active Substance: DEVICE
  2. TERAZOSIN [Concomitant]
     Active Substance: TERAZOSIN\TERAZOSIN HYDROCHLORIDE
  3. LEVBID [Concomitant]
     Active Substance: HYOSCYAMINE SULFATE
  4. CIPROFLOXIN [Concomitant]
     Active Substance: CIPROFLOXACIN
  5. FINASTERIDE. [Suspect]
     Active Substance: FINASTERIDE
     Indication: BENIGN PROSTATIC HYPERPLASIA
     Dosage: 2 YEARS APPROX?1 PILL ONCE A DAY
     Route: 048
  6. CYCLOBENZAPRINE [Concomitant]
     Active Substance: CYCLOBENZAPRINE

REACTIONS (4)
  - Ejaculation disorder [None]
  - Prostate cancer [None]
  - Erectile dysfunction [None]
  - Male sexual dysfunction [None]

NARRATIVE: CASE EVENT DATE: 20150128
